FAERS Safety Report 10172811 (Version 1)
Quarter: 2014Q2

REPORT INFORMATION
  Report Type: Spontaneous
  Country: US (occurrence: US)
  Receive Date: 20140515
  Receipt Date: 20140515
  Transmission Date: 20141212
  Serious: Yes (Hospitalization)
  Sender: FDA-Public Use
  Company Number: US-GLAXOSMITHKLINE-A1065174A

PATIENT
  Age: 26 Year
  Sex: Female

DRUGS (4)
  1. LAMICTAL [Suspect]
     Indication: EPILEPSY
     Route: 048
     Dates: start: 2003
  2. LAMOTRIGINE [Suspect]
     Indication: EPILEPSY
     Route: 048
     Dates: start: 2003
  3. DEPAKOTE [Suspect]
     Indication: PRODUCT USED FOR UNKNOWN INDICATION
     Route: 065
  4. KEPPRA [Concomitant]
     Indication: EPILEPSY
     Dosage: 25MG UNKNOWN
     Dates: start: 2003

REACTIONS (16)
  - Convulsion [Unknown]
  - Blindness transient [Recovered/Resolved]
  - Gastritis erosive [Unknown]
  - Oesophageal rupture [Unknown]
  - Haematemesis [Unknown]
  - Head injury [Unknown]
  - Concussion [Unknown]
  - Protein urine present [Recovered/Resolved]
  - Urine ketone body present [Recovered/Resolved]
  - Toxicity to various agents [Unknown]
  - Panic reaction [Unknown]
  - Formication [Unknown]
  - Rash pruritic [Unknown]
  - Rash papular [Unknown]
  - Fall [Unknown]
  - Drug interaction [Unknown]
